FAERS Safety Report 7660006-6 (Version None)
Quarter: 2011Q3

REPORT INFORMATION
  Report Type: 
  Country: None (occurrence: None)
  Receive Date: 20110805
  Receipt Date: 20110801
  Transmission Date: 20111222
  Serious: Yes (Other)
  Sender: FDA-Public Use
  Company Number: FR-BRISTOL-MYERS SQUIBB COMPANY-15656184

PATIENT
  Age: 40 Year
  Sex: Female

DRUGS (8)
  1. VALDOXAN [Concomitant]
     Route: 048
     Dates: start: 20100601, end: 20101109
  2. IMOVANE [Suspect]
     Route: 048
     Dates: start: 20080101
  3. NICOTINE [Concomitant]
     Dosage: 1DF=5 NICOTINE LOZENGES
  4. ABILIFY [Suspect]
     Route: 048
     Dates: start: 20080101
  5. LITHIUM CARBONATE [Suspect]
     Route: 048
     Dates: start: 20040101
  6. ACETAMINOPHEN [Concomitant]
     Route: 048
     Dates: start: 20100801, end: 20100901
  7. LEVOTHYROXINE SODIUM [Concomitant]
     Route: 048
     Dates: start: 20040101
  8. TRAMADOL HCL [Concomitant]
     Route: 048
     Dates: start: 20100801, end: 20100901

REACTIONS (2)
  - SARCOIDOSIS [None]
  - GRANULOMATOUS LIVER DISEASE [None]
